FAERS Safety Report 4775059-2 (Version None)
Quarter: 2005Q3

REPORT INFORMATION
  Report Type: 
  Country: None (occurrence: None)
  Receive Date: 20050920
  Receipt Date: 20050912
  Transmission Date: 20060218
  Serious: Yes (Hospitalization, Other)
  Sender: FDA-Public Use
  Company Number: 2005109284

PATIENT
  Age: 76 Year
  Sex: Female

DRUGS (2)
  1. LIPITOR [Suspect]
     Indication: DYSLIPIDAEMIA
     Dosage: 20 MG (20 MG, 1 IN 1 D), ORAL
     Route: 048
     Dates: start: 20010501, end: 20041001
  2. ATENOLOL [Concomitant]

REACTIONS (3)
  - CAROTID ARTERY DISEASE [None]
  - VASCULAR BYPASS GRAFT [None]
  - VASCULAR OPERATION [None]
